FAERS Safety Report 24036092 (Version 1)
Quarter: 2024Q2

REPORT INFORMATION
  Report Type: Spontaneous
  Country: US (occurrence: None)
  Receive Date: 20240630
  Receipt Date: 20240630
  Transmission Date: 20240716
  Serious: Yes (Other)
  Sender: FDA-Public Use
  Company Number: None

PATIENT
  Age: 34 Year
  Sex: Female

DRUGS (1)
  1. PROZAC [Suspect]
     Active Substance: FLUOXETINE HYDROCHLORIDE

REACTIONS (5)
  - Loss of libido [None]
  - Genital hypoaesthesia [None]
  - Flat affect [None]
  - Suicidal ideation [None]
  - Depressed mood [None]

NARRATIVE: CASE EVENT DATE: 20210310
